FAERS Safety Report 18380171 (Version 10)
Quarter: 2022Q1

REPORT INFORMATION
  Report Type: Spontaneous
  Country: US (occurrence: US)
  Receive Date: 20201014
  Receipt Date: 20220128
  Transmission Date: 20220424
  Serious: Yes (Other)
  Sender: FDA-Public Use
  Company Number: US-GLAXOSMITHKLINE-US2020AMR202155

PATIENT
  Sex: Female

DRUGS (9)
  1. ZEJULA [Suspect]
     Active Substance: NIRAPARIB
     Indication: Ovarian cancer
     Dosage: UNK
     Dates: start: 20200928
  2. ZEJULA [Suspect]
     Active Substance: NIRAPARIB
     Dosage: 200 MG, QD
  3. ZEJULA [Suspect]
     Active Substance: NIRAPARIB
     Dosage: 200 MG, QD
  4. ZEJULA [Suspect]
     Active Substance: NIRAPARIB
     Dosage: 200 MG, QD
     Route: 048
     Dates: start: 2020
  5. ZEJULA [Suspect]
     Active Substance: NIRAPARIB
     Dosage: 200 MG, QD
  6. ZEJULA [Suspect]
     Active Substance: NIRAPARIB
     Dosage: 200 MG, QD
  7. ZEJULA [Suspect]
     Active Substance: NIRAPARIB
     Dosage: 200 MG, QD
     Route: 048
  8. ZEJULA [Suspect]
     Active Substance: NIRAPARIB
     Dosage: 200 MG, QD
     Route: 048
  9. HYDROCHLOROTHIAZIDE [Suspect]
     Active Substance: HYDROCHLOROTHIAZIDE
     Indication: Blood pressure increased
     Dosage: 12.5 MG, QD
     Route: 048

REACTIONS (19)
  - Neuropathy peripheral [Unknown]
  - Angina pectoris [Unknown]
  - Feeling abnormal [Unknown]
  - Fatigue [Unknown]
  - Sleep disorder [Unknown]
  - Throat irritation [Not Recovered/Not Resolved]
  - Anxiety [Unknown]
  - Thyroid mass [Unknown]
  - Acne [Unknown]
  - Rash [Recovered/Resolved]
  - Restless legs syndrome [Unknown]
  - Fungal infection [Unknown]
  - Blood pressure increased [Not Recovered/Not Resolved]
  - Insomnia [Unknown]
  - Somnolence [Unknown]
  - Urine potassium [Unknown]
  - Middle insomnia [Unknown]
  - Product dose omission in error [Unknown]
  - Drug ineffective [Unknown]
